FAERS Safety Report 18412790 (Version 3)
Quarter: 2021Q3

REPORT INFORMATION
  Report Type: Report from Study
  Country: None (occurrence: FR)
  Receive Date: 20201022
  Receipt Date: 20210923
  Transmission Date: 20211014
  Serious: Yes (Other)
  Sender: FDA-Public Use
  Company Number: FR-ABBVIE-20K-056-3391795-00

PATIENT
  Age: 71 Year
  Sex: Female
  Weight: 46 kg

DRUGS (23)
  1. VENETOCLAX. [Suspect]
     Active Substance: VENETOCLAX
     Route: 048
     Dates: start: 20200309, end: 20200315
  2. RITUXIMAB. [Concomitant]
     Active Substance: RITUXIMAB
     Indication: CHRONIC LYMPHOCYTIC LEUKAEMIA
     Route: 065
     Dates: start: 20200330
  3. POLYVALENT IMMUNOGLOBULINS [Concomitant]
     Indication: HYPOGAMMAGLOBULINAEMIA
     Dates: start: 200507
  4. LEDERFOLINE [Concomitant]
     Active Substance: LEUCOVORIN CALCIUM
     Indication: PROPHYLAXIS
     Dates: start: 20170518
  5. MOPRAL [Concomitant]
     Active Substance: OMEPRAZOLE
     Indication: GASTROOESOPHAGEAL REFLUX DISEASE
  6. CHOLECALCIFEROL [Concomitant]
     Active Substance: CHOLECALCIFEROL
     Indication: VITAMIN D DEFICIENCY
  7. VENETOCLAX. [Suspect]
     Active Substance: VENETOCLAX
     Indication: CHRONIC LYMPHOCYTIC LEUKAEMIA
     Route: 048
     Dates: start: 20200217, end: 20200223
  8. MOPRAL [Concomitant]
     Active Substance: OMEPRAZOLE
     Indication: PROPHYLAXIS
     Dates: start: 201912, end: 20200630
  9. BACTRIM [Concomitant]
     Active Substance: SULFAMETHOXAZOLE\TRIMETHOPRIM
     Indication: ANTIBIOTIC PROPHYLAXIS
     Dates: start: 20120705
  10. OGASTORO [Concomitant]
     Active Substance: LANSOPRAZOLE
     Indication: CONSTIPATION
  11. MACROGOL [Concomitant]
     Active Substance: POLYETHYLENE GLYCOLS
     Indication: CONSTIPATION
     Dates: start: 20200219
  12. VENETOCLAX. [Suspect]
     Active Substance: VENETOCLAX
     Route: 048
     Dates: start: 20200706
  13. POLYVALENT IMMUNOGLOBULINS [Concomitant]
     Indication: PROPHYLAXIS
  14. LEXOMIL [Concomitant]
     Active Substance: BROMAZEPAM
     Indication: ANXIOLYTIC THERAPY
     Dates: start: 20200219
  15. VENETOCLAX. [Suspect]
     Active Substance: VENETOCLAX
     Route: 048
     Dates: start: 20200224, end: 20200301
  16. VENETOCLAX. [Suspect]
     Active Substance: VENETOCLAX
     Route: 048
     Dates: start: 20200302, end: 20200308
  17. VENETOCLAX. [Suspect]
     Active Substance: VENETOCLAX
     Route: 048
     Dates: start: 20200316, end: 20200705
  18. ROMIPLOSTIM [Concomitant]
     Active Substance: ROMIPLOSTIM
     Indication: IMMUNE THROMBOCYTOPENIA
     Route: 065
     Dates: start: 20100412
  19. PREVNAR [Concomitant]
     Active Substance: PNEUMOCOCCAL 7-VALENT CONJUGATE VACCINE (DIPHTHERIA CRM197 PROTEIN)
     Indication: ANTIBIOTIC THERAPY
     Dates: start: 20200303, end: 20200303
  20. ZELITREX [Concomitant]
     Active Substance: VALACYCLOVIR HYDROCHLORIDE
     Indication: ANTIVIRAL TREATMENT
     Dates: start: 20120705
  21. OGASTORO [Concomitant]
     Active Substance: LANSOPRAZOLE
     Indication: PAIN
     Dates: start: 20200219
  22. EFEXOR [Concomitant]
     Active Substance: VENLAFAXINE HYDROCHLORIDE
     Indication: ANXIOLYTIC THERAPY
     Dates: start: 20200219
  23. CHOLECALCIFEROL [Concomitant]
     Active Substance: CHOLECALCIFEROL
     Indication: PROPHYLAXIS
     Dates: start: 20200916

REACTIONS (8)
  - Off label use [Unknown]
  - Hypophosphataemia [Recovered/Resolved]
  - Hypoglycaemia [Recovered/Resolved]
  - Cough [Recovered/Resolved]
  - Immune thrombocytopenia [Recovered/Resolved]
  - Neutropenia [Recovered/Resolved]
  - Asthenia [Not Recovered/Not Resolved]
  - Hyponatraemia [Recovered/Resolved]

NARRATIVE: CASE EVENT DATE: 2020
